FAERS Safety Report 19615300 (Version 2)
Quarter: 2021Q3

REPORT INFORMATION
  Report Type: Report from Study
  Country: CA (occurrence: CA)
  Receive Date: 20210727
  Receipt Date: 20210810
  Transmission Date: 20211014
  Serious: Yes (Death, Other)
  Sender: FDA-Public Use
  Company Number: CA-TAKEDA-CA201840148

PATIENT
  Age: 65 Year
  Sex: Male

DRUGS (7)
  1. PRESERVISION [Concomitant]
     Active Substance: MINERALS\VITAMINS
     Indication: EYE DISORDER
     Dosage: UNK
     Route: 065
  2. VIT B 12 [Concomitant]
     Active Substance: CYANOCOBALAMIN
     Indication: PRODUCT USED FOR UNKNOWN INDICATION
     Dosage: UNK, MONTHLY
     Route: 065
  3. CUVITRU [Suspect]
     Active Substance: HUMAN IMMUNOGLOBULIN G
     Indication: PRIMARY IMMUNODEFICIENCY SYNDROME
     Dosage: 12 GRAM, 1/WEEK
     Route: 058
     Dates: start: 20180605, end: 20210623
  4. COLESTIPOL [Concomitant]
     Active Substance: COLESTIPOL
     Indication: MALABSORPTION
     Route: 065
  5. AVASTIN [Concomitant]
     Active Substance: BEVACIZUMAB
     Indication: PRODUCT USED FOR UNKNOWN INDICATION
     Dosage: UNK
     Route: 031
  6. URSODIL [Concomitant]
     Active Substance: URSODIOL
     Indication: PRODUCT USED FOR UNKNOWN INDICATION
     Dosage: UNK
     Route: 065
  7. VITAMIN 15 [Concomitant]
     Dosage: UNK
     Route: 065

REACTIONS (5)
  - Gastrointestinal disorder [Unknown]
  - Chronic hepatic failure [Fatal]
  - Gastrointestinal pain [Unknown]
  - Weight decreased [Unknown]
  - Flatulence [Unknown]

NARRATIVE: CASE EVENT DATE: 202106
